FAERS Safety Report 7465796-3 (Version None)
Quarter: 2011Q2

REPORT INFORMATION
  Report Type: 
  Country: None (occurrence: None)
  Receive Date: 20110509
  Receipt Date: 20100416
  Transmission Date: 20111010
  Serious: No
  Sender: FDA-Public Use
  Company Number: US-ALEXION-A201000433

PATIENT
  Sex: Female

DRUGS (3)
  1. TPN [Concomitant]
     Dosage: AT HS
  2. DICTABINE [Concomitant]
     Dosage: Q MONTH
  3. SOLIRIS [Suspect]
     Dosage: UNK
     Route: 042
     Dates: end: 20091001

REACTIONS (6)
  - FATIGUE [None]
  - GINGIVAL BLEEDING [None]
  - SKIN INFECTION [None]
  - ABDOMINAL PAIN [None]
  - GASTROOESOPHAGEAL REFLUX DISEASE [None]
  - BLOOD PRODUCT TRANSFUSION DEPENDENT [None]
